FAERS Safety Report 5300532-8 (Version None)
Quarter: 2007Q2

REPORT INFORMATION
  Report Type: 
  Country: None (occurrence: None)
  Receive Date: 20070418
  Receipt Date: 20070406
  Transmission Date: 20071010
  Serious: Yes (Other)
  Sender: FDA-Public Use
  Company Number: PHEH2007US04553

PATIENT
  Age: 51 Year
  Sex: Male

DRUGS (1)
  1. ZELNORM [Suspect]

REACTIONS (2)
  - ANORECTAL OPERATION [None]
  - HAEMORRHOID OPERATION [None]
